FAERS Safety Report 5093637-0 (Version None)
Quarter: 2006Q3

REPORT INFORMATION
  Report Type: 
  Country: None (occurrence: None)
  Receive Date: 20060829
  Receipt Date: 20060817
  Transmission Date: 20061208
  Serious: Yes (Other)
  Sender: FDA-Public Use
  Company Number: A-US2006-12774

PATIENT
  Age: 80 Year
  Sex: Female

DRUGS (2)
  1. TRACLEER [Suspect]
     Indication: PULMONARY HYPERTENSION
     Dosage: SEE IMAGE   ORAL
     Route: 048
     Dates: start: 20060201, end: 20060301
  2. TRACLEER [Suspect]
     Indication: PULMONARY HYPERTENSION
     Dosage: SEE IMAGE   ORAL
     Route: 048
     Dates: start: 20060301, end: 20060801

REACTIONS (3)
  - DIARRHOEA [None]
  - FLATULENCE [None]
  - NAUSEA [None]
